FAERS Safety Report 16654752 (Version 1)
Quarter: 2019Q3

REPORT INFORMATION
  Report Type: Report from Study
  Country: ES (occurrence: ES)
  Receive Date: 20190801
  Receipt Date: 20190801
  Transmission Date: 20191004
  Serious: Yes (Other)
  Sender: FDA-Public Use
  Company Number: ES-B.I. PHARMACEUTICALS,INC./RIDGEFIELD-2019-BI-031517

PATIENT

DRUGS (1)
  1. PERSANTIN [Suspect]
     Active Substance: DIPYRIDAMOLE
     Indication: PRODUCT USED FOR UNKNOWN INDICATION
     Dosage: INFUSION, HIGH DOSE UP TO 0.84MG OVER 6 MIN.
     Route: 065

REACTIONS (1)
  - Mitral valve incompetence [Unknown]
